FAERS Safety Report 18996107 (Version 1)
Quarter: 2021Q1

REPORT INFORMATION
  Report Type: Spontaneous
  Country: US (occurrence: US)
  Receive Date: 20210311
  Receipt Date: 20210311
  Transmission Date: 20210420
  Serious: No
  Sender: FDA-Public Use
  Company Number: US-THERATECHNOLOGIES INC.-2021-THE-IBA-000061

PATIENT
  Age: 53 Year
  Sex: Male

DRUGS (17)
  1. PREGABALIN. [Concomitant]
     Active Substance: PREGABALIN
  2. AMLODIPINE [Concomitant]
     Active Substance: AMLODIPINE BESYLATE
  3. CONTOUR                            /01479302/ [Concomitant]
  4. TIVICAY [Concomitant]
     Active Substance: DOLUTEGRAVIR SODIUM
  5. LEVOTHYROXIN [Concomitant]
     Active Substance: LEVOTHYROXINE
  6. VALACYCLOVIR                       /01269701/ [Concomitant]
     Active Substance: VALACYCLOVIR HYDROCHLORIDE
  7. TROGARZO [Suspect]
     Active Substance: IBALIZUMAB-UIYK
     Indication: HIV INFECTION
     Dosage: 2000 MG,DILUTED IN 250 ML OF 0.9% NACL TO INFUSE OVER 30 MINUTES WITH 20 ML POST INFUSION FLUSH
     Route: 042
  8. LEVEMIR [Concomitant]
     Active Substance: INSULIN DETEMIR
  9. HUMALOG [Concomitant]
     Active Substance: INSULIN LISPRO
  10. INSULIN [Concomitant]
     Active Substance: INSULIN NOS
  11. METOPROLOL. [Concomitant]
     Active Substance: METOPROLOL
  12. MORPHINE [Concomitant]
     Active Substance: MORPHINE
  13. WARFARIN [Concomitant]
     Active Substance: WARFARIN
  14. LANTUS [Concomitant]
     Active Substance: INSULIN GLARGINE
  15. FIASP [Concomitant]
     Active Substance: INSULIN ASPART
  16. HYDROCODONE [Concomitant]
     Active Substance: HYDROCODONE
  17. ENOXAPARIN [Concomitant]
     Active Substance: ENOXAPARIN

REACTIONS (2)
  - Product dose omission issue [Not Recovered/Not Resolved]
  - Stomatitis [Not Recovered/Not Resolved]

NARRATIVE: CASE EVENT DATE: 202012
